FAERS Safety Report 10168965 (Version 1)
Quarter: 2014Q2

REPORT INFORMATION
  Report Type: Spontaneous
  Country: US (occurrence: None)
  Receive Date: 20140509
  Receipt Date: 20140509
  Transmission Date: 20141212
  Serious: Yes (Other)
  Sender: FDA-Public Use
  Company Number: US-MDCO-14-00110

PATIENT
  Sex: Female

DRUGS (1)
  1. ANGIOMAX (BIVALIRUDIN MARKETED) (BIVALIRUDIN) (BIVALIRUDIN) [Suspect]
     Indication: PERCUTANEOUS CORONARY INTERVENTION
     Dosage: NOT REPORTED, NOT REPORTED
     Dates: start: 2014

REACTIONS (2)
  - Myocardial infarction [None]
  - Thrombosis in device [None]
